FAERS Safety Report 18078078 (Version 5)
Quarter: 2020Q3

REPORT INFORMATION
  Report Type: Spontaneous
  Country: US (occurrence: US)
  Receive Date: 20200727
  Receipt Date: 20200916
  Transmission Date: 20201103
  Serious: Yes (Hospitalization)
  Sender: FDA-Public Use
  Company Number: US-SEATTLE GENETICS-2020SGN03036

PATIENT
  Sex: Female

DRUGS (3)
  1. CAPECITABINE. [Concomitant]
     Active Substance: CAPECITABINE
     Indication: BREAST CANCER FEMALE
  2. HERCEPTIN [Concomitant]
     Active Substance: TRASTUZUMAB
     Indication: BREAST CANCER FEMALE
  3. TUKYSA [Suspect]
     Active Substance: TUCATINIB
     Indication: BREAST CANCER FEMALE
     Dosage: UNK UNK, BID

REACTIONS (10)
  - Pain [Unknown]
  - Condition aggravated [Unknown]
  - Swelling [Unknown]
  - Disease progression [Unknown]
  - Loss of consciousness [Unknown]
  - Head injury [Unknown]
  - Depression [Unknown]
  - Fall [Unknown]
  - Fatigue [Unknown]
  - Drug ineffective [Unknown]
